FAERS Safety Report 6534167-6 (Version None)
Quarter: 2009Q4

REPORT INFORMATION
  Report Type: 
  Country: None (occurrence: None)
  Receive Date: 20091214
  Receipt Date: 20090729
  Transmission Date: 20100525
  Serious: Yes (Other)
  Sender: FDA-Public Use
  Company Number: 436387

PATIENT
  Age: 52 Year
  Sex: Female

DRUGS (2)
  1. PEGASYS [Suspect]
     Indication: HEPATITIS C
     Dosage: SUBCUTANEOUS
     Route: 058
     Dates: start: 20051229, end: 20080101
  2. COPEGUS [Suspect]
     Indication: HEPATITIS C
     Dosage: 1200 MG DAILY ORAL
     Route: 048
     Dates: start: 20051229, end: 20060914

REACTIONS (5)
  - ANAEMIA [None]
  - HAEMOGLOBIN ABNORMAL [None]
  - NO THERAPEUTIC RESPONSE [None]
  - RED BLOOD CELL ABNORMALITY [None]
  - WHITE BLOOD CELL DISORDER [None]
